FAERS Safety Report 4952553-2 (Version None)
Quarter: 2006Q1

REPORT INFORMATION
  Report Type: 
  Country: None (occurrence: None)
  Receive Date: 20060323
  Receipt Date: 20060308
  Transmission Date: 20060701
  Serious: Yes (Other)
  Sender: FDA-Public Use
  Company Number: JP-MERCK-0603USA02073

PATIENT
  Age: 15 Month
  Sex: Male
  Weight: 10 kg

DRUGS (5)
  1. DECADRON [Suspect]
     Indication: MENINGITIS
     Route: 048
  2. AMIKACIN BANYU [Concomitant]
     Route: 051
  3. CEFTRIAXONE SODIUM [Suspect]
     Indication: MENINGITIS
     Route: 051
  4. CEFTRIAXONE SODIUM [Suspect]
     Route: 051
  5. MEROPENEM [Concomitant]
     Indication: MENINGITIS
     Route: 042

REACTIONS (4)
  - CALCULUS URINARY [None]
  - DISSEMINATED INTRAVASCULAR COAGULATION [None]
  - OCCULT BLOOD [None]
  - ORAL CANDIDIASIS [None]
